FAERS Safety Report 12187216 (Version 1)
Quarter: 2016Q1

REPORT INFORMATION
  Report Type: Spontaneous
  Country: US (occurrence: US)
  Receive Date: 20160317
  Receipt Date: 20160317
  Transmission Date: 20160526
  Serious: Yes (Hospitalization)
  Sender: FDA-Public Use
  Company Number: US-NOVOPROD-483996

PATIENT
  Age: 84 Year
  Sex: Male

DRUGS (1)
  1. TRESIBA FLEXTOUCH [Suspect]
     Active Substance: INSULIN DEGLUDEC
     Indication: DIABETES MELLITUS
     Dosage: UNK, TWICE DAILY
     Route: 058
     Dates: start: 2016, end: 2016

REACTIONS (3)
  - Hypoglycaemia [Unknown]
  - Myocardial infarction [Not Recovered/Not Resolved]
  - Rash generalised [Unknown]

NARRATIVE: CASE EVENT DATE: 2016
